FAERS Safety Report 12304056 (Version 4)
Quarter: 2017Q4

REPORT INFORMATION
  Report Type: Spontaneous
  Country: US (occurrence: US)
  Receive Date: 20160426
  Receipt Date: 20171123
  Transmission Date: 20180320
  Serious: No
  Sender: FDA-Public Use
  Company Number: US-JNJFOC-20160411851

PATIENT
  Sex: Male

DRUGS (6)
  1. RISPERDAL [Suspect]
     Active Substance: RISPERIDONE
     Indication: BIPOLAR DISORDER
     Route: 048
     Dates: start: 20000609, end: 20090910
  2. RISPERDAL [Suspect]
     Active Substance: RISPERIDONE
     Indication: CONDUCT DISORDER
     Route: 048
     Dates: start: 20000609, end: 20090910
  3. RISPERDAL [Suspect]
     Active Substance: RISPERIDONE
     Indication: OPPOSITIONAL DEFIANT DISORDER
     Dosage: VARYING DOSES OF UNSPECIFIED DOSE, 0.5 MG, 01 MG AND 1.5 MG
     Route: 048
     Dates: start: 20000609, end: 20000821
  4. RISPERDAL [Suspect]
     Active Substance: RISPERIDONE
     Indication: OPPOSITIONAL DEFIANT DISORDER
     Route: 048
     Dates: start: 20000609, end: 20090910
  5. RISPERDAL [Suspect]
     Active Substance: RISPERIDONE
     Indication: CONDUCT DISORDER
     Dosage: VARYING DOSES OF UNSPECIFIED DOSE, 0.5 MG, 01 MG AND 1.5 MG
     Route: 048
     Dates: start: 20000609, end: 20000821
  6. RISPERDAL [Suspect]
     Active Substance: RISPERIDONE
     Indication: BIPOLAR DISORDER
     Dosage: VARYING DOSES OF UNSPECIFIED DOSE, 0.5 MG, 01 MG AND 1.5 MG
     Route: 048
     Dates: start: 20000609, end: 20000821

REACTIONS (2)
  - Gynaecomastia [Unknown]
  - Emotional disorder [Unknown]
